FAERS Safety Report 5334137-X (Version None)
Quarter: 2007Q2

REPORT INFORMATION
  Report Type: 
  Country: None (occurrence: None)
  Receive Date: 20070308
  Receipt Date: 20070116
  Transmission Date: 20071010
  Serious: No
  Sender: FDA-Public Use
  Company Number: 2006-BP-05393BP

PATIENT
  Age: 73 Year
  Sex: Female

DRUGS (7)
  1. SPIRIVA [Suspect]
     Indication: EMPHYSEMA
     Dosage: 18 MCG (18 MCG, 1 IN 1 D), IH
     Route: 055
     Dates: start: 20051101
  2. SPIRIVA [Suspect]
  3. ALBUTEROL SULFATE [Concomitant]
  4. FOSAMAX [Concomitant]
  5. AMITRIPTYLINE HCL [Concomitant]
  6. PAXIL [Concomitant]
  7. ALPROZOLAM (ALPRAZOLAM) [Concomitant]

REACTIONS (2)
  - AGEUSIA [None]
  - FEELING ABNORMAL [None]
